FAERS Safety Report 10733786 (Version 1)
Quarter: 2015Q1

REPORT INFORMATION
  Report Type: Spontaneous
  Country: DE (occurrence: DE)
  Receive Date: 20150123
  Receipt Date: 20150123
  Transmission Date: 20150721
  Serious: Yes (Death, Congenital Anomaly)
  Sender: FDA-Public Use
  Company Number: DE-BRISTOL-MYERS SQUIBB COMPANY-BMS-2015-001726

PATIENT
  Sex: Female
  Weight: .24 kg

DRUGS (3)
  1. PREDNISONE. [Concomitant]
     Active Substance: PREDNISONE
     Route: 064
  2. METFORMIN HYDROCHLORIDE. [Suspect]
     Active Substance: METFORMIN HYDROCHLORIDE
     Dosage: 1275 MG, QD
     Route: 064
     Dates: start: 20140515, end: 20140715
  3. FOLSAEURE [Concomitant]
     Active Substance: FOLIC ACID
     Route: 064

REACTIONS (7)
  - Hypoplastic left heart syndrome [Fatal]
  - Foetal exposure during pregnancy [Recovered/Resolved]
  - Congenital cystic kidney disease [Fatal]
  - Mitral valve atresia [Fatal]
  - Aorta hypoplasia [Fatal]
  - Pulmonary hypoplasia [Fatal]
  - Asplenia [Fatal]
